FAERS Safety Report 16619616 (Version 5)
Quarter: 2025Q1

REPORT INFORMATION
  Report Type: Report from Study
  Country: JP (occurrence: JP)
  Receive Date: 20190723
  Receipt Date: 20250205
  Transmission Date: 20250409
  Serious: Yes (Life-Threatening, Other)
  Sender: PFIZER
  Company Number: JP-PFIZER INC-2019310377

PATIENT
  Age: 3 Year
  Sex: Female
  Weight: 13 kg

DRUGS (22)
  1. METHOTREXATE SODIUM [Suspect]
     Active Substance: METHOTREXATE SODIUM
     Indication: Philadelphia positive acute lymphocytic leukaemia
     Dates: start: 20180130
  2. ICLUSIG [Suspect]
     Active Substance: PONATINIB HYDROCHLORIDE
     Indication: Philadelphia positive acute lymphocytic leukaemia
     Dosage: 10 MG, DAILY
     Route: 048
     Dates: start: 20180413, end: 20180515
  3. ICLUSIG [Suspect]
     Active Substance: PONATINIB HYDROCHLORIDE
     Dosage: 15 MG, DAILY
     Route: 048
     Dates: start: 20180516, end: 20180529
  4. ICLUSIG [Suspect]
     Active Substance: PONATINIB HYDROCHLORIDE
     Dosage: 5 MG, DAILY
     Route: 048
     Dates: start: 20180617
  5. DEXAMETHASONE SODIUM PHOSPHATE [Suspect]
     Active Substance: DEXAMETHASONE SODIUM PHOSPHATE
     Indication: Philadelphia positive acute lymphocytic leukaemia
     Dates: start: 20171211
  6. DASATINIB [Concomitant]
     Active Substance: DASATINIB
     Dosage: 60 MG, DAILY
     Dates: start: 20171215, end: 20180412
  7. PREDNISOLONE ACETATE [Concomitant]
     Active Substance: PREDNISOLONE ACETATE
     Dates: start: 20171209
  8. ONCOVIN [Concomitant]
     Active Substance: VINCRISTINE SULFATE
     Dates: start: 20171211
  9. DAUNORUBICIN HYDROCHLORIDE [Concomitant]
     Active Substance: DAUNORUBICIN HYDROCHLORIDE
     Dates: start: 20171211
  10. CYCLOPHOSPHAMIDE [Concomitant]
     Active Substance: CYCLOPHOSPHAMIDE
     Dates: start: 20171213
  11. ASPARAGINASE [Concomitant]
     Active Substance: ASPARAGINASE
     Dates: start: 20171218
  12. ETOPOSIDE [Concomitant]
     Active Substance: ETOPOSIDE
     Dates: start: 20180112
  13. IFOSFAMIDE [Concomitant]
     Active Substance: IFOSFAMIDE
     Dates: start: 20180112, end: 20180116
  14. CYTARABINE [Concomitant]
     Active Substance: CYTARABINE
     Dates: start: 20180131
  15. ROZEREM [Concomitant]
     Active Substance: RAMELTEON
     Dates: start: 20180514, end: 20180520
  16. NIFEDIPINE [Concomitant]
     Active Substance: NIFEDIPINE
     Dates: start: 20180519, end: 20180613
  17. HYALURONATE SODIUM [Concomitant]
     Active Substance: HYALURONATE SODIUM
  18. FML [Concomitant]
     Active Substance: FLUOROMETHOLONE
  19. CANDESARTAN CILEXETIL [Concomitant]
     Active Substance: CANDESARTAN CILEXETIL
  20. PONATINIB [Concomitant]
     Active Substance: PONATINIB
     Dosage: 10 MG, 1X/DAY
     Route: 048
  21. PONATINIB [Concomitant]
     Active Substance: PONATINIB
     Dosage: 15 MG, DAILY
     Route: 048
  22. PONATINIB [Concomitant]
     Active Substance: PONATINIB
     Dosage: 5 MG, DAILY
     Route: 048

REACTIONS (7)
  - Acute kidney injury [Recovered/Resolved]
  - Altered state of consciousness [Unknown]
  - Abdominal pain [Unknown]
  - Drug clearance decreased [Unknown]
  - Hypertension [Recovering/Resolving]
  - Photophobia [Not Recovered/Not Resolved]
  - Diarrhoea [Recovering/Resolving]

NARRATIVE: CASE EVENT DATE: 20180313
